FAERS Safety Report 8809592 (Version 2)
Quarter: 2015Q1

REPORT INFORMATION
  Report Type: Report from Study
  Country: US (occurrence: US)
  Receive Date: 20120926
  Receipt Date: 20150310
  Transmission Date: 20150721
  Serious: Yes (Other)
  Sender: FDA-Public Use
  Company Number: US-ROCHE-1104130

PATIENT
  Age: 66 Year
  Sex: Female

DRUGS (19)
  1. AVASTIN [Suspect]
     Active Substance: BEVACIZUMAB
     Indication: COLON CANCER
     Route: 042
     Dates: start: 20041201
  2. LEUCOVORIN [Concomitant]
     Active Substance: LEUCOVORIN
     Route: 065
     Dates: start: 20041217
  3. HEPARIN [Concomitant]
     Active Substance: HEPARIN SODIUM
     Dosage: 3000 UNIT
     Route: 065
  4. LEUCOVORIN [Concomitant]
     Active Substance: LEUCOVORIN
     Route: 065
     Dates: start: 20041201
  5. 5-FLUOROURACIL [Concomitant]
     Active Substance: FLUOROURACIL
     Route: 065
     Dates: start: 20041217
  6. ALOXI [Concomitant]
     Active Substance: PALONOSETRON HYDROCHLORIDE
     Route: 065
     Dates: start: 20060215
  7. AVASTIN [Suspect]
     Active Substance: BEVACIZUMAB
     Indication: COLON CANCER
  8. DEXAMETHASONE. [Concomitant]
     Active Substance: DEXAMETHASONE
     Route: 065
  9. CPT-11 [Suspect]
     Active Substance: IRINOTECAN
     Indication: PRODUCT USED FOR UNKNOWN INDICATION
     Route: 065
     Dates: start: 20050429
  10. CPT-11 [Suspect]
     Active Substance: IRINOTECAN
     Route: 065
     Dates: start: 20050513, end: 20050603
  11. ZOFRAN [Concomitant]
     Active Substance: ONDANSETRON HYDROCHLORIDE
     Route: 065
  12. LEUCOVORIN [Concomitant]
     Active Substance: LEUCOVORIN
     Route: 065
     Dates: start: 20050121
  13. 5-FLUOROURACIL [Concomitant]
     Active Substance: FLUOROURACIL
     Route: 065
     Dates: start: 20041201
  14. DECADRON [Concomitant]
     Active Substance: DEXAMETHASONE
     Route: 065
     Dates: start: 20060215
  15. COUMADIN [Concomitant]
     Active Substance: WARFARIN SODIUM
     Route: 065
     Dates: start: 200601
  16. XELODA [Suspect]
     Active Substance: CAPECITABINE
     Indication: PRODUCT USED FOR UNKNOWN INDICATION
     Dosage: FOR 14 DAYS
     Route: 065
     Dates: start: 200512
  17. 5-FLUOROURACIL [Concomitant]
     Active Substance: FLUOROURACIL
     Route: 065
     Dates: start: 20050121
  18. ATROPINE [Concomitant]
     Active Substance: ATROPINE
     Route: 065
     Dates: start: 20060103
  19. AVASTIN [Suspect]
     Active Substance: BEVACIZUMAB
     Indication: METASTASES TO LIVER

REACTIONS (11)
  - Anxiety [Unknown]
  - Neuropathy peripheral [Recovered/Resolved]
  - Alopecia [Unknown]
  - Vomiting [Unknown]
  - Disease progression [Unknown]
  - Diarrhoea [Unknown]
  - Pain [Unknown]
  - Toxicity to various agents [Unknown]
  - Oedema [Unknown]
  - Fatigue [Unknown]
  - Nausea [Unknown]

NARRATIVE: CASE EVENT DATE: 20050107
